FAERS Safety Report 6910389-7 (Version None)
Quarter: 2010Q3

REPORT INFORMATION
  Report Type: 
  Country: None (occurrence: None)
  Receive Date: 20100806
  Receipt Date: 20100727
  Transmission Date: 20110219
  Serious: Yes (Other)
  Sender: FDA-Public Use
  Company Number: US-SANOFI-AVENTIS-2010SA044125

PATIENT
  Age: 67 Year
  Sex: Female

DRUGS (11)
  1. MULTAQ [Suspect]
     Indication: ATRIAL FIBRILLATION
     Route: 048
     Dates: start: 20100201, end: 20100720
  2. VERAPAMIL [Suspect]
     Route: 065
     Dates: end: 20100101
  3. VERAPAMIL [Suspect]
     Dosage: TWO PILLS A DAY
     Route: 065
     Dates: start: 20100720
  4. DYAZIDE [Concomitant]
  5. VYTORIN [Concomitant]
  6. NEXIUM [Concomitant]
  7. VITAMIN TAB [Concomitant]
  8. ASPIRIN [Concomitant]
  9. CALCIUM [Concomitant]
  10. FUROSEMIDE [Concomitant]
  11. VALSARTAN [Concomitant]

REACTIONS (4)
  - ASTHMA [None]
  - DYSPNOEA [None]
  - LUNG DISORDER [None]
  - WEIGHT INCREASED [None]
